FAERS Safety Report 6821712-6 (Version None)
Quarter: 2010Q3

REPORT INFORMATION
  Report Type: 
  Country: None (occurrence: None)
  Receive Date: 20100702
  Receipt Date: 20100625
  Transmission Date: 20110219
  Serious: Yes (Hospitalization)
  Sender: FDA-Public Use
  Company Number: 2010SP035816

PATIENT
  Age: 77 Year
  Sex: Female

DRUGS (6)
  1. DEXAMETHASONE [Suspect]
     Indication: METASTASIS
     Dosage: 12 MG;QD;PO
     Route: 048
  2. MORPHINE SULFATE [Suspect]
     Indication: PAIN
     Dosage: 75 MG; PO
     Route: 048
  3. LANSOPRAZOLE (CON.) [Concomitant]
  4. METOCLOPRAMIDE (CON.) [Concomitant]
  5. SERETIDE /01420901/ (CON.) [Concomitant]
  6. SPIRIVA (CON.) [Concomitant]

REACTIONS (2)
  - HALLUCINATIONS, MIXED [None]
  - NARCOTIC INTOXICATION [None]
